FAERS Safety Report 7605193-0 (Version None)
Quarter: 2011Q3

REPORT INFORMATION
  Report Type: 
  Country: None (occurrence: None)
  Receive Date: 20110705
  Receipt Date: 20110628
  Transmission Date: 20111222
  Serious: Yes (Hospitalization)
  Sender: FDA-Public Use
  Company Number: 964786

PATIENT
  Age: 65 Year
  Sex: Female

DRUGS (4)
  1. XELODA [Concomitant]
  2. OXALIPLATIN [Suspect]
     Indication: COLON CANCER
     Dates: start: 20110330, end: 20110330
  3. ENALAPRIL MALEATE AND HYDROCHLOROTHIAZIDE [Concomitant]
  4. XELODA [Concomitant]

REACTIONS (8)
  - DYSPHAGIA [None]
  - DYSPNOEA [None]
  - NERVOUSNESS [None]
  - SENSORY DISTURBANCE [None]
  - DISCOMFORT [None]
  - MUCOSAL DRYNESS [None]
  - DYSPHONIA [None]
  - ANXIETY [None]
